FAERS Safety Report 14639322 (Version 1)
Quarter: 2018Q1

REPORT INFORMATION
  Report Type: Spontaneous
  Country: US (occurrence: US)
  Receive Date: 20180315
  Receipt Date: 20180315
  Transmission Date: 20180509
  Serious: No
  Sender: FDA-Public Use
  Company Number: US-009507513-1803USA000996

PATIENT
  Age: 26 Year
  Sex: Female

DRUGS (1)
  1. NEXPLANON [Suspect]
     Active Substance: ETONOGESTREL
     Indication: CONTRACEPTION
     Dosage: 68 MG IMPLANT, ONCE EVERY 3 YEARS
     Route: 059
     Dates: start: 20161018, end: 20171023

REACTIONS (2)
  - Tremor [Unknown]
  - Visual impairment [Unknown]

NARRATIVE: CASE EVENT DATE: 20171023
